FAERS Safety Report 4861956-6 (Version None)
Quarter: 2005Q4

REPORT INFORMATION
  Report Type: 
  Country: None (occurrence: None)
  Receive Date: 20051130
  Receipt Date: 20050520
  Transmission Date: 20060501
  Serious: Yes (Other)
  Sender: FDA-Public Use
  Company Number: PHEH2005US04274

PATIENT
  Sex: Female

DRUGS (1)
  1. LAMISIL [Suspect]
     Dosage: 250 MG, QD, ORAL
     Route: 048
     Dates: start: 20050301

REACTIONS (4)
  - AGEUSIA [None]
  - DYSGEUSIA [None]
  - NEURALGIA [None]
  - THIRST [None]
